FAERS Safety Report 7581227-7 (Version None)
Quarter: 2011Q2

REPORT INFORMATION
  Report Type: 
  Country: None (occurrence: None)
  Receive Date: 20110629
  Receipt Date: 20110627
  Transmission Date: 20111010
  Serious: Yes (Death, Hospitalization)
  Sender: FDA-Public Use
  Company Number: PT-TEVA-284620ISR

PATIENT
  Age: 49 Year
  Sex: Female

DRUGS (2)
  1. METFORMIN HCL [Suspect]
  2. FENOFIBRATE [Suspect]

REACTIONS (2)
  - TOXIC EPIDERMAL NECROLYSIS [None]
  - DEATH [None]
